FAERS Safety Report 13575700 (Version 1)
Quarter: 2017Q2

REPORT INFORMATION
  Report Type: Spontaneous
  Country: FR (occurrence: FR)
  Receive Date: 20170524
  Receipt Date: 20170524
  Transmission Date: 20170830
  Serious: Yes (Other)
  Sender: FDA-Public Use
  Company Number: FR-AMGEN-FRASP2017078004

PATIENT
  Age: 70 Year
  Sex: Female

DRUGS (18)
  1. CYCLOPHOSPHAMIDE. [Suspect]
     Active Substance: CYCLOPHOSPHAMIDE
     Indication: BREAST CANCER
     Dosage: UNK, CYCLICAL (CYCLE 1)
     Route: 065
     Dates: start: 20170227
  2. POLARAMINE [Suspect]
     Active Substance: DEXCHLORPHENIRAMINE MALEATE
     Dosage: UNK UNK, CYCLICAL (CYCLE 3)
     Route: 065
     Dates: start: 20170425
  3. TAXOL [Suspect]
     Active Substance: PACLITAXEL
     Indication: BREAST CANCER
     Dosage: UNK, CYCLICAL (CYCLE 3)
     Route: 065
     Dates: start: 20170425
  4. SOLU-MEDROL [Suspect]
     Active Substance: METHYLPREDNISOLONE SODIUM SUCCINATE
     Dosage: UNK, CYCLICAL (CYCLE 3)
     Route: 065
     Dates: start: 20170425
  5. OMERAZOLE [Concomitant]
     Active Substance: OMEPRAZOLE
     Dosage: UNK
  6. NIVESTIM [Concomitant]
     Active Substance: FILGRASTIM
     Dosage: UNK, QD 30 (3 DAYS)
     Dates: start: 20170330
  7. CYCLOPHOSPHAMIDE. [Suspect]
     Active Substance: CYCLOPHOSPHAMIDE
     Dosage: UNK, CYCLICAL (CYCLE 2)
     Route: 065
     Dates: start: 20170327
  8. CALCI 3 [Concomitant]
     Dosage: UNK
  9. BIPROFENID [Concomitant]
     Active Substance: KETOPROFEN
     Dosage: UNK
  10. NEULASTA [Suspect]
     Active Substance: PEGFILGRASTIM
     Indication: PRODUCT USED FOR UNKNOWN INDICATION
     Dosage: 1 DF, UNK (ONE SINGLE DOSE)
     Route: 058
     Dates: start: 20170228
  11. SOLU-MEDROL [Suspect]
     Active Substance: METHYLPREDNISOLONE SODIUM SUCCINATE
     Indication: BREAST CANCER
     Dosage: UNK, CYCLICAL (CYCLE 1)
     Route: 065
     Dates: start: 20170227
  12. POLARAMINE [Suspect]
     Active Substance: DEXCHLORPHENIRAMINE MALEATE
     Indication: PRODUCT USED FOR UNKNOWN INDICATION
     Dosage: UNK, CYCLICAL (CYCLE 2)
     Route: 065
     Dates: start: 20170327
  13. EPIRUBICINE [Suspect]
     Active Substance: EPIRUBICIN
     Indication: BREAST CANCER
     Dosage: UNK, CYCLICAL (CYCLE 1)
     Route: 065
     Dates: start: 20170227
  14. EPIRUBICINE [Suspect]
     Active Substance: EPIRUBICIN
     Dosage: UNK, CYCLICAL (CYCLE 2)
     Route: 065
     Dates: start: 20170327
  15. SOLU-MEDROL [Suspect]
     Active Substance: METHYLPREDNISOLONE SODIUM SUCCINATE
     Dosage: UNK, CYCLICAL (CYCLE 2)
     Route: 065
     Dates: start: 20170327
  16. COKENZEN [Concomitant]
     Active Substance: CANDESARTAN CILEXETIL\HYDROCHLOROTHIAZIDE
     Dosage: 1 DF, QD
     Route: 048
     Dates: start: 2001
  17. APRANAX [Concomitant]
     Active Substance: NAPROXEN
     Dosage: UNK
  18. TRANQUITAL [Concomitant]
     Active Substance: HERBALS
     Dosage: UNK

REACTIONS (1)
  - Angioedema [Recovered/Resolved]

NARRATIVE: CASE EVENT DATE: 20170301
